FAERS Safety Report 5286337-5 (Version None)
Quarter: 2007Q2

REPORT INFORMATION
  Report Type: 
  Country: None (occurrence: None)
  Receive Date: 20070404
  Receipt Date: 20070330
  Transmission Date: 20071010
  Serious: No
  Sender: FDA-Public Use
  Company Number: 2006UW10841

PATIENT
  Age: 53 Year
  Sex: Female
  Weight: 90.9 kg

DRUGS (3)
  1. SEROQUEL [Suspect]
     Indication: BIPOLAR DISORDER
     Dosage: 100-300MG
     Route: 048
     Dates: start: 20030604, end: 20060810
  2. ABILIFY [Concomitant]
  3. GEODON [Concomitant]

REACTIONS (1)
  - DIABETES MELLITUS [None]
